FAERS Safety Report 4457996-1 (Version None)
Quarter: 2004Q3

REPORT INFORMATION
  Report Type: 
  Country: None (occurrence: None)
  Receive Date: 20040917
  Receipt Date: 20040412
  Transmission Date: 20050211
  Serious: Yes (Other)
  Sender: FDA-Public Use
  Company Number: US-JNJFOC-20040402687

PATIENT
  Age: 26 Year
  Sex: Female

DRUGS (3)
  1. TOPAMAX [Suspect]
     Indication: DRUG USE FOR UNKNOWN INDICATION
     Dosage: 50 MG, IN 1 DAY, ORAL
     Route: 048
  2. DILANTIN (PHEYNTOIN SODIUM) [Concomitant]
  3. TYLENOL (TABLETS) PARACETAMOL [Concomitant]

REACTIONS (3)
  - CONVULSION [None]
  - MIGRAINE [None]
  - MYALGIA [None]
